FAERS Safety Report 5710613-2 (Version None)
Quarter: 2008Q2

REPORT INFORMATION
  Report Type: 
  Country: None (occurrence: None)
  Receive Date: 20080415
  Receipt Date: 20080403
  Transmission Date: 20081010
  Serious: Yes (Other)
  Sender: FDA-Public Use
  Company Number: 026199

PATIENT
  Age: 27 Year
  Sex: Female

DRUGS (1)
  1. ATENOLOL [Suspect]
     Indication: SINUS TACHYCARDIA

REACTIONS (7)
  - ABNORMAL BEHAVIOUR [None]
  - ANOREXIA NERVOSA [None]
  - DEPRESSION [None]
  - GENERALISED ANXIETY DISORDER [None]
  - PANIC DISORDER [None]
  - SOCIAL PHOBIA [None]
  - WEIGHT DECREASED [None]
